FAERS Safety Report 25668333 (Version 5)
Quarter: 2025Q4

REPORT INFORMATION
  Report Type: Report from Study
  Country: EU (occurrence: EU)
  Receive Date: 20250812
  Receipt Date: 20251205
  Transmission Date: 20260117
  Serious: Yes (Hospitalization, Other)
  Sender: BRISTOL-MYERS SQUIBB COMPANY
  Company Number: EU-BRISTOL-MYERS SQUIBB COMPANY-2025-110794

PATIENT
  Age: 79 Year
  Sex: Male
  Weight: 65 kg

DRUGS (15)
  1. NIVOLUMAB [Suspect]
     Active Substance: NIVOLUMAB
     Indication: Non-small cell lung cancer metastatic
     Dosage: ROUTE OF ADMINISTRATION: EV; FREQUENCY: 21 DAYS
     Route: 042
     Dates: start: 20250116
  2. IPILIMUMAB [Suspect]
     Active Substance: IPILIMUMAB
     Indication: Non-small cell lung cancer metastatic
     Dosage: ROUTE OF ADMINISTRATION: EV; FREQUENCY: 42 DAYS
     Route: 042
     Dates: start: 20250116
  3. PANTOPRAZOLO DOC [Concomitant]
     Indication: Gastrointestinal disorder prophylaxis
     Dosage: G. 14CPR,
     Route: 048
     Dates: start: 20241224
  4. DEXAMETHASONE SODIUM PHOSPHATE [Concomitant]
     Active Substance: DEXAMETHASONE SODIUM PHOSPHATE
     Indication: Premedication
     Route: 048
     Dates: start: 20250115
  5. FOLIC ACID [Concomitant]
     Active Substance: FOLIC ACID
     Indication: Premedication
     Dosage: 20CPS
     Route: 048
     Dates: start: 20241224
  6. FOLIC ACID [Concomitant]
     Active Substance: FOLIC ACID
     Dosage: 20CPS
     Route: 048
  7. FILGRASTIM [Concomitant]
     Active Substance: FILGRASTIM
     Indication: Prophylaxis
     Dosage: 30MU, 3 EVERY 2 WEEKS
     Route: 058
     Dates: start: 20250117
  8. ENTECAVIR [Concomitant]
     Active Substance: ENTECAVIR
     Indication: Antiviral prophylaxis
     Route: 048
     Dates: start: 20250110
  9. BISOPROLOL FUMARATE [Concomitant]
     Active Substance: BISOPROLOL FUMARATE
     Indication: Hypertension
     Dosage: 28CPR RIV
     Route: 048
     Dates: start: 20200210
  10. HYDROCHLOROTHIAZIDE\IRBESARTAN [Concomitant]
     Active Substance: HYDROCHLOROTHIAZIDE\IRBESARTAN
     Indication: Hypertension
     Dosage: 28CPR 150MG+12.5MG
     Route: 048
     Dates: start: 20200510
  11. MANIDIPINE [Concomitant]
     Active Substance: MANIDIPINE
     Indication: Hypertension
     Dosage: 28CPR
     Route: 048
     Dates: start: 20200510
  12. DOBETIN [Concomitant]
     Indication: Product used for unknown indication
     Dosage: *INIET 5F 1ML
  13. FLECAINIDE ACETATE [Concomitant]
     Active Substance: FLECAINIDE ACETATE
     Indication: Product used for unknown indication
  14. MEGACE [Concomitant]
     Active Substance: MEGESTROL ACETATE
     Indication: Product used for unknown indication
     Dosage: *30CPR
  15. LASIX [Concomitant]
     Active Substance: FUROSEMIDE
     Indication: Product used for unknown indication
     Dosage: *30CPR

REACTIONS (11)
  - Immunotoxicity [Recovering/Resolving]
  - Blood creatinine increased [Recovering/Resolving]
  - Acute kidney injury [Recovering/Resolving]
  - Fall [Unknown]
  - Head injury [Unknown]
  - Limb injury [Unknown]
  - Oedema [Recovering/Resolving]
  - Asthenia [Recovering/Resolving]
  - Nausea [Recovering/Resolving]
  - Hiccups [Recovering/Resolving]
  - Decreased appetite [Recovering/Resolving]

NARRATIVE: CASE EVENT DATE: 20250707
